FAERS Safety Report 24463472 (Version 1)
Quarter: 2024Q4

REPORT INFORMATION
  Report Type: Spontaneous
  Country: US (occurrence: US)
  Receive Date: 20241018
  Receipt Date: 20241018
  Transmission Date: 20250114
  Serious: Yes (Hospitalization, Other)
  Sender: LUPIN
  Company Number: US-MLMSERVICE-20240315-4887752-1

PATIENT
  Age: 28 Year
  Sex: Male

DRUGS (28)
  1. TENOFOVIR ALAFENAMIDE [Suspect]
     Active Substance: TENOFOVIR ALAFENAMIDE
     Indication: Hepatitis B
     Dosage: UNK
     Route: 065
  2. METHYLPREDNISOLONE [Suspect]
     Active Substance: METHYLPREDNISOLONE
     Indication: Acquired amegakaryocytic thrombocytopenia
     Dosage: 1000 MILLIGRAM
     Route: 065
  3. METHYLPREDNISOLONE [Suspect]
     Active Substance: METHYLPREDNISOLONE
     Indication: Systemic lupus erythematosus
     Dosage: 60 MILLIGRAM (DECREASED DOSE)
     Route: 065
  4. METHYLPREDNISOLONE [Suspect]
     Active Substance: METHYLPREDNISOLONE
     Dosage: 20 MILLIGRAM (DECREASED DOSE)
     Route: 065
  5. HYDROXYCHLOROQUINE [Suspect]
     Active Substance: HYDROXYCHLOROQUINE
     Indication: Acquired amegakaryocytic thrombocytopenia
     Dosage: 200 MILLIGRAM
     Route: 065
  6. HYDROXYCHLOROQUINE [Suspect]
     Active Substance: HYDROXYCHLOROQUINE
     Indication: Systemic lupus erythematosus
     Dosage: 200 MILLIGRAM, QD
     Route: 065
  7. MYCOPHENOLATE MOFETIL [Suspect]
     Active Substance: MYCOPHENOLATE MOFETIL
     Indication: Acquired amegakaryocytic thrombocytopenia
     Dosage: 500 MILLIGRAM, BID
     Route: 065
  8. MYCOPHENOLATE MOFETIL [Suspect]
     Active Substance: MYCOPHENOLATE MOFETIL
     Indication: Systemic lupus erythematosus
     Dosage: 1000 MILLIGRAM, BID (DOSE GRADUALLY TITRATED UP)
     Route: 065
  9. MYCOPHENOLATE MOFETIL [Suspect]
     Active Substance: MYCOPHENOLATE MOFETIL
     Dosage: 1500 MILLIGRAM, BID (DOSE GRADUALLY TITRATED UP)
     Route: 065
  10. MYCOPHENOLATE MOFETIL [Suspect]
     Active Substance: MYCOPHENOLATE MOFETIL
     Dosage: 500 MILLIGRAM, BID (RESTARTED DOSE)
     Route: 065
  11. MYCOPHENOLATE MOFETIL [Suspect]
     Active Substance: MYCOPHENOLATE MOFETIL
     Dosage: 1000 MILLIGRAM, BID (DOSE GRADUALLY TITRATED UP)
     Route: 065
  12. MYCOPHENOLATE MOFETIL [Suspect]
     Active Substance: MYCOPHENOLATE MOFETIL
     Dosage: 1500 MILLIGRAM, BID (DOSE GRADUALLY TITRATED UP)
     Route: 065
  13. CYCLOSPORINE [Suspect]
     Active Substance: CYCLOSPORINE
     Indication: Acquired amegakaryocytic thrombocytopenia
     Dosage: 200 MILLIGRAM, BID
     Route: 065
  14. CYCLOSPORINE [Suspect]
     Active Substance: CYCLOSPORINE
     Indication: Systemic lupus erythematosus
     Dosage: 100 MILLIGRAM, BID (DOSE REDUCED)
     Route: 065
  15. DEXAMETHASONE [Concomitant]
     Active Substance: DEXAMETHASONE
     Indication: Acquired amegakaryocytic thrombocytopenia
     Dosage: 40 MILLIGRAM
     Route: 048
  16. DEXAMETHASONE [Concomitant]
     Active Substance: DEXAMETHASONE
     Indication: Systemic lupus erythematosus
  17. IMMUNE GLOBULIN [Concomitant]
     Indication: Acquired amegakaryocytic thrombocytopenia
     Dosage: UNK
     Route: 042
  18. IMMUNE GLOBULIN [Concomitant]
     Indication: Systemic lupus erythematosus
  19. RITUXIMAB [Concomitant]
     Active Substance: RITUXIMAB
     Indication: Acquired amegakaryocytic thrombocytopenia
     Dosage: 1 GRAM
     Route: 065
  20. RITUXIMAB [Concomitant]
     Active Substance: RITUXIMAB
     Indication: Systemic lupus erythematosus
  21. PREDNISOLONE [Concomitant]
     Active Substance: PREDNISOLONE
     Indication: Acquired amegakaryocytic thrombocytopenia
     Dosage: 40 MILLIGRAM
     Route: 065
  22. PREDNISOLONE [Concomitant]
     Active Substance: PREDNISOLONE
     Indication: Systemic lupus erythematosus
     Dosage: 30 MILLIGRAM (DOSE TAPERED DOWN)
     Route: 065
  23. PREDNISOLONE [Concomitant]
     Active Substance: PREDNISOLONE
     Dosage: 20 MILLIGRAM (DOSE TAPERED DOWN)
     Route: 065
  24. PREDNISOLONE [Concomitant]
     Active Substance: PREDNISOLONE
     Dosage: 10 MILLIGRAM (DOSE TAPERED DOWN)
     Route: 065
  25. ELTROMBOPAG [Concomitant]
     Active Substance: ELTROMBOPAG
     Indication: Acquired amegakaryocytic thrombocytopenia
     Dosage: 50 MILLIGRAM, QD
     Route: 065
  26. ELTROMBOPAG [Concomitant]
     Active Substance: ELTROMBOPAG
     Indication: Systemic lupus erythematosus
  27. METHOTREXATE [Concomitant]
     Active Substance: METHOTREXATE
     Indication: Acquired amegakaryocytic thrombocytopenia
     Dosage: 25 MILLIGRAM
     Route: 065
  28. METHOTREXATE [Concomitant]
     Active Substance: METHOTREXATE
     Indication: Systemic lupus erythematosus

REACTIONS (1)
  - Pancytopenia [Unknown]
